FAERS Safety Report 23635058 (Version 2)
Quarter: 2024Q1

REPORT INFORMATION
  Report Type: Spontaneous
  Country: US (occurrence: US)
  Receive Date: 20240315
  Receipt Date: 20240320
  Transmission Date: 20240410
  Serious: No
  Sender: FDA-Public Use
  Company Number: US-AMGEN-USASP2024052541

PATIENT
  Age: 71 Year

DRUGS (1)
  1. REPATHA [Suspect]
     Active Substance: EVOLOCUMAB
     Indication: Product used for unknown indication
     Dosage: UNK
     Route: 065

REACTIONS (6)
  - Drug ineffective [Unknown]
  - High density lipoprotein abnormal [Unknown]
  - Low density lipoprotein abnormal [Unknown]
  - Lipoprotein (a) abnormal [Unknown]
  - Computerised tomogram heart abnormal [Unknown]
  - Blood cholesterol abnormal [Unknown]
